FAERS Safety Report 7902307-X (Version None)
Quarter: 2011Q4

REPORT INFORMATION
  Report Type: 
  Country: None (occurrence: None)
  Receive Date: 20111108
  Receipt Date: 20111029
  Transmission Date: 20120403
  Serious: Yes (Hospitalization)
  Sender: FDA-Public Use
  Company Number: US-ACTELION-A-US2011-48995

PATIENT

DRUGS (6)
  1. EPOPROSTENOL SODIUM [Suspect]
     Indication: PULMONARY ARTERIAL HYPERTENSION
     Dosage: 30 NG/KG, PER MIN
     Route: 042
     Dates: start: 20101209
  2. EPOPROSTENOL SODIUM [Suspect]
     Dosage: 38 NG/KG, PER MIN
     Route: 042
  3. COUMADIN [Concomitant]
  4. AMBRISENTAN [Concomitant]
     Dosage: UNK
     Dates: start: 20070523
  5. LASIX [Concomitant]
  6. SILDENAFIL CITRATE [Concomitant]
     Dosage: UNK
     Dates: start: 20071120

REACTIONS (14)
  - CELLULITIS [None]
  - SYNCOPE [None]
  - OEDEMA PERIPHERAL [None]
  - HAEMARTHROSIS [None]
  - RIGHT VENTRICULAR FAILURE [None]
  - JOINT SWELLING [None]
  - VENOUS PRESSURE JUGULAR INCREASED [None]
  - FLUID OVERLOAD [None]
  - FALL [None]
  - DYSPNOEA [None]
  - ABDOMINAL DISTENSION [None]
  - HYPERKALAEMIA [None]
  - FATIGUE [None]
  - DEVICE ISSUE [None]
